FAERS Safety Report 5266994-X (Version None)
Quarter: 2007Q1

REPORT INFORMATION
  Report Type: 
  Country: None (occurrence: None)
  Receive Date: 20070313
  Receipt Date: 20070301
  Transmission Date: 20070707
  Serious: Yes (Other)
  Sender: FDA-Public Use
  Company Number: 2007PV031057

PATIENT
  Age: 48 Year
  Sex: Female

DRUGS (1)
  1. BYETTA [Suspect]
     Indication: DIABETES MELLITUS
     Dosage: ; SC
     Route: 058
     Dates: start: 20060531, end: 20060620

REACTIONS (1)
  - CUTANEOUS VASCULITIS [None]
